FAERS Safety Report 6113229-1 (Version None)
Quarter: 2009Q1

REPORT INFORMATION
  Report Type: 
  Country: None (occurrence: None)
  Receive Date: 20090312
  Receipt Date: 20090303
  Transmission Date: 20090719
  Serious: Yes (Hospitalization)
  Sender: FDA-Public Use
  Company Number: US-WYE-H08435709

PATIENT
  Sex: Male
  Weight: 136.2 kg

DRUGS (5)
  1. PRISTIQ [Suspect]
     Route: 048
     Dates: start: 20080129, end: 20090302
  2. ZOCOR [Concomitant]
     Indication: BLOOD CHOLESTEROL ABNORMAL
     Route: 048
  3. PLAVIX [Concomitant]
     Route: 048
  4. REGLAN [Concomitant]
     Indication: GASTROOESOPHAGEAL REFLUX DISEASE
     Route: 048
  5. ZESTRIL [Concomitant]
     Indication: BLOOD PRESSURE ABNORMAL
     Route: 048

REACTIONS (1)
  - GASTRIC DISORDER [None]
